FAERS Safety Report 11806042 (Version 1)
Quarter: 2015Q4

REPORT INFORMATION
  Report Type: Report from Study
  Country: US (occurrence: US)
  Receive Date: 20151207
  Receipt Date: 20151207
  Transmission Date: 20160305
  Serious: Yes (Hospitalization)
  Sender: FDA-Public Use
  Company Number: US-AMGEN-USACT2015129204

PATIENT
  Age: 48 Year
  Sex: Female

DRUGS (7)
  1. DOCETAXEL. [Suspect]
     Active Substance: DOCETAXEL
     Indication: UTERINE LEIOMYOSARCOMA
     Dosage: 75 MG/M2, OVER 60 MIN ON DAY 8 (CYCLE OF 3 WEEKS)
     Route: 042
  2. ZOFRAN [Concomitant]
     Active Substance: ONDANSETRON HYDROCHLORIDE
     Indication: NAUSEA
     Dosage: UNK
     Route: 042
  3. MORPHINE [Concomitant]
     Active Substance: MORPHINE
     Indication: PAIN
     Dosage: UNK
     Route: 042
  4. PEGFILGRASTIM [Suspect]
     Active Substance: PEGFILGRASTIM
     Indication: UTERINE LEIOMYOSARCOMA
     Dosage: 6 MG, ON DAYS 9 (CYCLE OF 3 WEEKS)
     Route: 058
     Dates: start: 20110413
  5. BEVACIZUMAB [Suspect]
     Active Substance: BEVACIZUMAB
     Indication: UTERINE LEIOMYOSARCOMA
     Dosage: 15 MG/KG, OVER 30 TO 90 MIN ON DAY 1 (CYCLE OF 3 WEEKS)
     Route: 042
     Dates: start: 20110406
  6. GEMCITABINE [Suspect]
     Active Substance: GEMCITABINE\GEMCITABINE HYDROCHLORIDE
     Indication: UTERINE LEIOMYOSARCOMA
     Dosage: 900 MG/M2, OVER 90 MIN ON DAYS 1 AND 8 (CYCLE OF 3 WEEKS)
     Route: 042
     Dates: start: 20110406
  7. PHENERGAN [Concomitant]
     Active Substance: PROMETHAZINE HYDROCHLORIDE
     Indication: NAUSEA
     Dosage: UNK
     Route: 048

REACTIONS (5)
  - Platelet count decreased [Recovered/Resolved]
  - Pyrexia [Recovered/Resolved]
  - Urinary tract infection [Recovered/Resolved]
  - Neutrophil count decreased [Recovered/Resolved]
  - Clostridium difficile infection [Recovered/Resolved]

NARRATIVE: CASE EVENT DATE: 20110419
